FAERS Safety Report 10683086 (Version 1)
Quarter: 2014Q4

REPORT INFORMATION
  Report Type: Spontaneous
  Country: US (occurrence: None)
  Receive Date: 20141217
  Receipt Date: 20141217
  Transmission Date: 20150529
  Serious: Yes (Other)
  Sender: FDA-Public Use
  Company Number: TPA2009A01057

PATIENT
  Age: 82 Year
  Sex: Female
  Weight: 72.58 kg

DRUGS (4)
  1. KAPIDEX [Suspect]
     Active Substance: DEXLANSOPRAZOLE
     Indication: GASTRITIS
     Route: 048
     Dates: start: 20090511, end: 20090514
  2. LISINOPRIL. [Concomitant]
     Active Substance: LISINOPRIL
  3. NORVASC [Concomitant]
     Active Substance: AMLODIPINE BESYLATE
  4. LEVOTHYROXINE [Concomitant]
     Active Substance: LEVOTHYROXINE

REACTIONS (2)
  - Sluggishness [None]
  - Blood pressure increased [None]

NARRATIVE: CASE EVENT DATE: 20090512
